FAERS Safety Report 21581049 (Version 1)
Quarter: 2022Q4

REPORT INFORMATION
  Report Type: Spontaneous
  Country: US (occurrence: US)
  Receive Date: 20221111
  Receipt Date: 20221111
  Transmission Date: 20230112
  Serious: Yes (Other)
  Sender: FDA-Public Use
  Company Number: US-NOVAST LABORATORIES INC.-2022NOV000324

PATIENT
  Age: 50 Year
  Sex: Female

DRUGS (3)
  1. GEMCITABINE HYDROCHLORIDE [Suspect]
     Active Substance: GEMCITABINE HYDROCHLORIDE
     Indication: HER2 positive breast cancer
     Dosage: 1000 MILLIGRAM/SQ. METER ON DAYS 1 AND 8 OF A 21-DAY CYCLE
     Route: 065
  2. TRASTUZUMAB-ANNS [Concomitant]
     Active Substance: TRASTUZUMAB-ANNS
     Indication: HER2 positive breast cancer
     Dosage: UNK
     Route: 065
  3. MARGETUXIMAB [Concomitant]
     Active Substance: MARGETUXIMAB
     Indication: HER2 positive breast cancer
     Dosage: 15 MILLIGRAM/KILOGRAM ON DAY 1  OF A 21-DAY CYCLE
     Route: 065

REACTIONS (1)
  - Ischaemia [Recovering/Resolving]
